FAERS Safety Report 17910033 (Version 1)
Quarter: 2020Q2

REPORT INFORMATION
  Report Type: Spontaneous
  Country: US (occurrence: US)
  Receive Date: 20200617
  Receipt Date: 20200617
  Transmission Date: 20200714
  Serious: No
  Sender: FDA-Public Use
  Company Number: US-009507513-2006USA004783

PATIENT
  Sex: Female

DRUGS (5)
  1. ASMANEX [Suspect]
     Active Substance: MOMETASONE FUROATE
     Dosage: 1 INHALATION IN THE MORNING AND 1 INHALATION IN THE EVENING; ROUTE OF ADMINISTRATION: REPORTED AS IN
     Route: 055
     Dates: start: 20200420
  2. ASMANEX [Suspect]
     Active Substance: MOMETASONE FUROATE
     Dosage: 1 INHALATION IN THE MORNING AND 1 INHALATION IN THE EVENING; ROUTE OF ADMINISTRATION: REPORTED AS IN
     Route: 055
     Dates: start: 2020
  3. ASMANEX [Suspect]
     Active Substance: MOMETASONE FUROATE
     Dosage: 1 INHALATION IN THE MORNING AND 1 INHALATION IN THE EVENING; ROUTE OF ADMINISTRATION: REPORTED AS IN
     Route: 055
     Dates: start: 20200320
  4. ASMANEX [Suspect]
     Active Substance: MOMETASONE FUROATE
     Dosage: 1 INHALATION IN THE MORNING AND 1 INHALATION IN THE EVENING; ROUTE OF ADMINISTRATION: REPORTED AS IN
     Route: 055
     Dates: start: 20200519
  5. ASMANEX [Suspect]
     Active Substance: MOMETASONE FUROATE
     Dosage: 1 INHALATION IN THE MORNING AND 1 INHALATION IN THE EVENING; ROUTE OF ADMINISTRATION: REPORTED AS IN
     Route: 055
     Dates: start: 2015

REACTIONS (3)
  - No adverse event [Unknown]
  - Poor quality device used [Unknown]
  - Product quality issue [Unknown]

NARRATIVE: CASE EVENT DATE: 2020
